FAERS Safety Report 10137159 (Version 1)
Quarter: 2014Q2

REPORT INFORMATION
  Report Type: Report from Study
  Country: US (occurrence: US)
  Receive Date: 20140429
  Receipt Date: 20140429
  Transmission Date: 20141212
  Serious: No
  Sender: FDA-Public Use
  Company Number: US-ABBVIE-14P-163-1222585-00

PATIENT
  Sex: Male
  Weight: 99.88 kg

DRUGS (5)
  1. ANDROGEL [Suspect]
     Indication: BLOOD TESTOSTERONE DECREASED
     Dates: start: 2013
  2. ANDROGEL [Suspect]
     Dates: end: 2013
  3. ANDROGEL [Suspect]
  4. ANDROGEL [Suspect]
  5. ANDROGEL [Suspect]

REACTIONS (1)
  - Blood testosterone decreased [Recovered/Resolved]
